FAERS Safety Report 23563086 (Version 1)
Quarter: 2024Q1

REPORT INFORMATION
  Report Type: Spontaneous
  Country: US (occurrence: US)
  Receive Date: 20240226
  Receipt Date: 20240226
  Transmission Date: 20240410
  Serious: No
  Sender: FDA-Public Use
  Company Number: US-SA-SAC20240222000117

PATIENT
  Age: 40 Year
  Sex: Male
  Weight: 158 kg

DRUGS (1)
  1. DUPIXENT [Suspect]
     Active Substance: DUPILUMAB
     Indication: Neurodermatitis
     Dosage: 300MG, QOW
     Route: 058
     Dates: start: 20230831

REACTIONS (3)
  - Sensitive skin [Unknown]
  - Pain of skin [Unknown]
  - Arthralgia [Unknown]

NARRATIVE: CASE EVENT DATE: 20240215
